FAERS Safety Report 14185408 (Version 1)
Quarter: 2017Q4

REPORT INFORMATION
  Report Type: Spontaneous
  Country: US (occurrence: US)
  Receive Date: 20171114
  Receipt Date: 20171114
  Transmission Date: 20180321
  Serious: No
  Sender: FDA-Public Use
  Company Number: US-WEST-WARD PHARMACEUTICALS CORP.-US-H14001-17-02306

PATIENT
  Sex: Female
  Weight: 51.76 kg

DRUGS (1)
  1. IRBESARTAN. [Suspect]
     Active Substance: IRBESARTAN
     Indication: HYPERTENSION
     Route: 048

REACTIONS (4)
  - Rash [Recovered/Resolved]
  - Gastrointestinal disorder [Recovered/Resolved]
  - Flatulence [Recovered/Resolved]
  - Urticaria [Recovered/Resolved]
